FAERS Safety Report 4918753-2 (Version None)
Quarter: 2006Q1

REPORT INFORMATION
  Report Type: 
  Country: None (occurrence: None)
  Receive Date: 20060216
  Receipt Date: 20060127
  Transmission Date: 20060701
  Serious: Yes (Hospitalization, Other)
  Sender: FDA-Public Use
  Company Number: US_000949233

PATIENT
  Age: 46 Year
  Sex: Female
  Weight: 56.4 kg

DRUGS (5)
  1. ILETIN [Suspect]
     Indication: DIABETES MELLITUS
     Dosage: 30 U, DAILY (1/D), SUBCUTANEOUS
     Route: 058
     Dates: start: 19830101
  2. HUMALOG [Suspect]
     Indication: DIABETES MELLITUS
     Dosage: 12 U, DAILY (1/D), SUBCUTANEOUS
     Route: 058
     Dates: start: 19960101
  3. HUMULIN(HUMAN INSULIN (RDNA ORIGIN) LENTE UNKNOWN FORMULATION) [Suspect]
     Indication: DIABETES MELLITUS
     Dosage: SUBCUTANEOUS
     Route: 058
  4. HUMULIN (HUMAN INSULIN (RDNA ORIGIN) NPH UNKNOWN FORMULATION) UNKNOWN [Suspect]
     Indication: DIABETES MELLITUS
  5. ILETIN [Suspect]
     Indication: DIABETES MELLITUS
     Dates: start: 19660101

REACTIONS (7)
  - ANTIBODY TEST ABNORMAL [None]
  - BLOOD GLUCOSE INCREASED [None]
  - DRUG INEFFECTIVE [None]
  - HYPERGLYCAEMIA [None]
  - PHARMACEUTICAL PRODUCT COMPLAINT [None]
  - RENAL FAILURE [None]
  - RENAL TRANSPLANT [None]
